FAERS Safety Report 10194027 (Version 1)
Quarter: 2014Q2

REPORT INFORMATION
  Report Type: Spontaneous
  Country: US (occurrence: US)
  Receive Date: 20140524
  Receipt Date: 20140524
  Transmission Date: 20141212
  Serious: No
  Sender: FDA-Public Use
  Company Number: US-SANOFI-AVENTIS-2013SA064901

PATIENT
  Age: 54 Year
  Sex: Female

DRUGS (1)
  1. LANTUS [Suspect]
     Indication: TYPE 2 DIABETES MELLITUS
     Dosage: TAKEN FROM-OVER FIVE YEARS DOSE:12 UNIT(S)
     Route: 065

REACTIONS (5)
  - Chest pain [Unknown]
  - Heart rate abnormal [Unknown]
  - Chest discomfort [Unknown]
  - Feeling abnormal [Unknown]
  - Malaise [Unknown]
